FAERS Safety Report 17396065 (Version 1)
Quarter: 2020Q1

REPORT INFORMATION
  Report Type: Spontaneous
  Country: US (occurrence: US)
  Receive Date: 20200207
  Receipt Date: 20200207
  Transmission Date: 20200409
  Serious: Yes (Death)
  Sender: FDA-Public Use
  Company Number: None

PATIENT
  Age: 71 Year
  Sex: Female
  Weight: 66.15 kg

DRUGS (1)
  1. ORENCIA [Suspect]
     Active Substance: ABATACEPT
     Indication: RHEUMATOID ARTHRITIS
     Dosage: ?          OTHER FREQUENCY:ONCE A MONTH;?
     Route: 042
     Dates: start: 20150501, end: 20200106

REACTIONS (6)
  - Pyrexia [None]
  - Pseudomonas infection [None]
  - Sepsis [None]
  - Anaplastic large-cell lymphoma [None]
  - Therapy non-responder [None]
  - Immunodeficiency [None]

NARRATIVE: CASE EVENT DATE: 20200110
